FAERS Safety Report 9030705 (Version 2)
Quarter: 2013Q1

REPORT INFORMATION
  Report Type: Spontaneous
  Country: US (occurrence: US)
  Receive Date: 20130123
  Receipt Date: 20130212
  Transmission Date: 20140127
  Serious: No
  Sender: FDA-Public Use
  Company Number: US-PFIZER INC-2013020598

PATIENT
  Age: 22 Year
  Sex: Male

DRUGS (12)
  1. VANCOMYCIN HCL [Suspect]
     Dosage: UNK
  2. OMEPRAZOLE [Suspect]
  3. LISINOPRIL [Suspect]
     Dosage: UNK
  4. PRAVASTATIN SODIUM [Suspect]
     Dosage: UNK
  5. LOPID [Suspect]
     Dosage: UNK
  6. METFORMIN HCL [Suspect]
     Dosage: UNK
  7. RELAFEN [Suspect]
     Dosage: UNK
  8. ASA [Suspect]
     Dosage: 81 MG, UNK
  9. INDOMETHACIN [Suspect]
     Dosage: UNK
  10. NOVOLIN [Suspect]
     Dosage: UNK
  11. HYDROXYZINE [Suspect]
  12. ALLOPURINOL [Suspect]
     Dosage: UNK

REACTIONS (1)
  - Drug hypersensitivity [Unknown]
